FAERS Safety Report 6546018-4 (Version None)
Quarter: 2010Q1

REPORT INFORMATION
  Report Type: 
  Country: None (occurrence: None)
  Receive Date: 20100121
  Receipt Date: 20100121
  Transmission Date: 20100710
  Serious: Yes (Other)
  Sender: FDA-Public Use
  Company Number: None

PATIENT
  Age: 43 Year
  Sex: Female
  Weight: 65.7716 kg

DRUGS (2)
  1. SINGULAIR [Suspect]
     Indication: ASTHMA
     Dosage: 10 MG DAILY PO
     Route: 048
  2. SINGULAIR [Suspect]
     Indication: BRONCHITIS CHRONIC
     Dosage: 10 MG DAILY PO
     Route: 048

REACTIONS (2)
  - EAR INFECTION [None]
  - RESPIRATORY TRACT INFECTION [None]
